FAERS Safety Report 5405309-0 (Version None)
Quarter: 2007Q3

REPORT INFORMATION
  Report Type: 
  Country: None (occurrence: None)
  Receive Date: 20070803
  Receipt Date: 20070725
  Transmission Date: 20080115
  Serious: Yes (Life-Threatening, Hospitalization)
  Sender: FDA-Public Use
  Company Number: B0481492A

PATIENT
  Age: 70 Year
  Sex: Male

DRUGS (4)
  1. HYCAMTIN [Suspect]
     Indication: BRONCHIAL CARCINOMA
     Route: 042
  2. CARBOPLATIN [Suspect]
     Indication: BRONCHIAL CARCINOMA
     Route: 042
  3. GRANOCYTE [Concomitant]
     Indication: PROPHYLAXIS
     Route: 058
  4. ARANESP [Concomitant]
     Indication: ANAEMIA PROPHYLAXIS
     Route: 058

REACTIONS (6)
  - ANAEMIA [None]
  - BONE MARROW FAILURE [None]
  - DIARRHOEA [None]
  - NEUTROPENIA [None]
  - PLATELET COUNT DECREASED [None]
  - WHITE BLOOD CELL COUNT DECREASED [None]
